FAERS Safety Report 6158102-8 (Version None)
Quarter: 2009Q2

REPORT INFORMATION
  Report Type: 
  Country: None (occurrence: None)
  Receive Date: 20090417
  Receipt Date: 20090415
  Transmission Date: 20091009
  Serious: Yes (Other)
  Sender: FDA-Public Use
  Company Number: AU-ASTRAZENECA-2009AP02645

PATIENT
  Age: 48 Year
  Sex: Female

DRUGS (5)
  1. SEROQUEL [Suspect]
     Indication: SCHIZOPHRENIA
     Route: 048
     Dates: start: 20080401
  2. ZELDOX [Suspect]
     Indication: SCHIZOPHRENIA
     Route: 048
     Dates: start: 20070422, end: 20080408
  3. EDRONAX [Concomitant]
     Indication: DEPRESSION
     Route: 048
  4. EPILIM [Concomitant]
     Indication: DEPRESSION
     Route: 048
  5. DURAGESIC-100 [Concomitant]
     Indication: BACK PAIN
     Route: 061

REACTIONS (3)
  - DYSARTHRIA [None]
  - JOINT STIFFNESS [None]
  - SWOLLEN TONGUE [None]
